FAERS Safety Report 6678680-X (Version None)
Quarter: 2010Q2

REPORT INFORMATION
  Report Type: 
  Country: None (occurrence: None)
  Receive Date: 20100413
  Receipt Date: 20100401
  Transmission Date: 20101027
  Serious: Yes (Hospitalization)
  Sender: FDA-Public Use
  Company Number: PL-PFIZER INC-2006076041

PATIENT
  Age: 58 Year
  Sex: Male
  Weight: 74 kg

DRUGS (17)
  1. SUNITINIB MALATE [Suspect]
     Indication: RENAL CANCER
     Dosage: 50 MG, 1X/DAY
     Route: 048
     Dates: start: 20060308, end: 20060517
  2. TORECAN [Concomitant]
     Dosage: UNK
     Route: 058
     Dates: start: 20060529, end: 20060609
  3. SPIRONOL [Concomitant]
     Dosage: UNK
     Route: 048
     Dates: start: 20060529, end: 20060609
  4. FUROSEMID [Concomitant]
     Dosage: UNK
     Route: 042
     Dates: start: 20060529
  5. FUROSEMID [Concomitant]
     Dosage: UNK
     Route: 048
  6. GLUCOSE [Concomitant]
     Dosage: 5 %, UNK
     Route: 042
     Dates: start: 20060529, end: 20060609
  7. SODIUM CHLORIDE [Concomitant]
     Dosage: 10 %, UNK
     Route: 042
     Dates: start: 20060529, end: 20060609
  8. SODIUM CHLORIDE [Concomitant]
     Dosage: 0.9 %, UNK
     Route: 042
     Dates: start: 20060529, end: 20060609
  9. ACTRAPID [Concomitant]
     Dosage: UNK
     Route: 058
     Dates: start: 20060529, end: 20060609
  10. CALCIUM [Concomitant]
     Dosage: UNK
     Route: 042
     Dates: start: 20060529, end: 20060609
  11. FLUDROCORTISONE [Concomitant]
     Dosage: UNK
     Route: 048
     Dates: start: 20060529, end: 20060609
  12. HYDROCORTISON [Concomitant]
     Dosage: UNK
     Route: 042
     Dates: start: 20060529, end: 20060609
  13. LANZUL [Concomitant]
     Dosage: UNK
     Route: 048
     Dates: start: 20060529
  14. TRAMAL [Concomitant]
     Dosage: UNK
     Route: 048
     Dates: start: 20060529
  15. PARACETAMOL [Concomitant]
     Dosage: UNK
     Route: 048
     Dates: start: 20060529, end: 20060609
  16. KETONAL [Concomitant]
     Dosage: UNK
     Route: 048
     Dates: start: 20060529
  17. BLOOD AND RELATED PRODUCTS [Concomitant]
     Dosage: UNK
     Route: 042

REACTIONS (4)
  - ANAEMIA [None]
  - ASCITES [None]
  - CACHEXIA [None]
  - RENAL FAILURE [None]
